FAERS Safety Report 10154958 (Version 1)
Quarter: 2014Q2

REPORT INFORMATION
  Report Type: Spontaneous
  Country: US (occurrence: None)
  Receive Date: 20140505
  Receipt Date: 20140505
  Transmission Date: 20141212
  Serious: No
  Sender: FDA-Public Use
  Company Number: None

PATIENT
  Age: 66 Year
  Sex: Female

DRUGS (1)
  1. AFFINITOR [Suspect]
     Indication: PRODUCT USED FOR UNKNOWN INDICATION
     Dosage: 7.5 MG ONE QD ORAL
     Route: 048
     Dates: start: 20140114, end: 20140502

REACTIONS (4)
  - Rash [None]
  - Pruritus [None]
  - Blister [None]
  - Skin exfoliation [None]
